FAERS Safety Report 19127306 (Version 1)
Quarter: 2021Q2

REPORT INFORMATION
  Report Type: Spontaneous
  Country: US (occurrence: US)
  Receive Date: 20210412
  Receipt Date: 20210412
  Transmission Date: 20210717
  Serious: Yes (Life-Threatening, Hospitalization, Disabling)
  Sender: FDA-Public Use
  Company Number: None

PATIENT
  Age: 65 Year
  Sex: Female
  Weight: 61.23 kg

DRUGS (1)
  1. NICOTINAMIDE ADENINE DINUCLEOTIDE [Suspect]
     Active Substance: NADIDE
     Dates: start: 20210119, end: 20210120

REACTIONS (11)
  - Pain [None]
  - Muscle rigidity [None]
  - Hypokinesia [None]
  - Vomiting [None]
  - Fatigue [None]
  - Thrombocytopenia [None]
  - Lethargy [None]
  - Aplastic anaemia [None]
  - Muscle spasms [None]
  - Nausea [None]
  - Pancytopenia [None]

NARRATIVE: CASE EVENT DATE: 20210120
